FAERS Safety Report 5733739-6 (Version None)
Quarter: 2008Q2

REPORT INFORMATION
  Report Type: 
  Country: None (occurrence: None)
  Receive Date: 20080509
  Receipt Date: 20080417
  Transmission Date: 20081010
  Serious: Yes (Hospitalization)
  Sender: FDA-Public Use
  Company Number: US-PURDUE-MAG_2008_0000678

PATIENT
  Age: 80 Year
  Sex: Male

DRUGS (8)
  1. THEOPHYLLINE [Suspect]
     Indication: CHRONIC OBSTRUCTIVE PULMONARY DISEASE
     Dosage: 200 MG, TID
     Route: 065
  2. DYAZIDE [Concomitant]
     Dosage: 25/50 MG, DAILY
     Route: 065
  3. AZATHIOPRINE [Concomitant]
     Dosage: 25 MG, UNK
     Route: 065
  4. MECLIZINE [Concomitant]
     Dosage: 25 MG, PRN
     Route: 065
  5. ALBUTEROL [Concomitant]
     Dosage: UNK, PRN
     Route: 055
  6. LEVOFLOXACIN [Concomitant]
     Dosage: 500 MG, DAILY
     Route: 048
  7. MORPHINE [Concomitant]
     Dosage: UNK, UNK
     Route: 042
  8. METRONIDAZOLE HCL [Concomitant]
     Dosage: 500 MG, TID
     Route: 042

REACTIONS (9)
  - ABDOMINAL DISTENSION [None]
  - ABDOMINAL PAIN UPPER [None]
  - ATRIAL TACHYCARDIA [None]
  - CONFUSIONAL STATE [None]
  - DELIRIUM [None]
  - HIP FRACTURE [None]
  - HYPOKALAEMIA [None]
  - KETOACIDOSIS [None]
  - LACTIC ACIDOSIS [None]
